FAERS Safety Report 19137224 (Version 1)
Quarter: 2021Q2

REPORT INFORMATION
  Report Type: Spontaneous
  Country: US (occurrence: US)
  Receive Date: 20210414
  Receipt Date: 20210414
  Transmission Date: 20210717
  Serious: No
  Sender: FDA-Public Use
  Company Number: US-FERRINGPH-2021FE00836

PATIENT
  Age: 74 Year
  Sex: Male
  Weight: 68.03 kg

DRUGS (2)
  1. CRESTOR [Concomitant]
     Active Substance: ROSUVASTATIN CALCIUM
     Indication: BLOOD CHOLESTEROL
     Dosage: LOW DOSE, DAILY
     Route: 065
  2. FIRMAGON [Suspect]
     Active Substance: DEGARELIX ACETATE
     Indication: PROSTATE CANCER
     Dosage: UNK, TREATED FOR 18 MONTHS, OFF FOR 16 MONTHS
     Route: 058

REACTIONS (7)
  - Influenza like illness [Unknown]
  - Chills [Unknown]
  - Wrong technique in product usage process [Unknown]
  - Headache [Unknown]
  - Abdominal tenderness [Unknown]
  - Pain [Unknown]
  - Abdominal distension [Unknown]

NARRATIVE: CASE EVENT DATE: 202008
